FAERS Safety Report 10392059 (Version 1)
Quarter: 2014Q3

REPORT INFORMATION
  Report Type: Other
  Country: US (occurrence: US)
  Receive Date: 20140819
  Receipt Date: 20140819
  Transmission Date: 20150326
  Serious: Yes (Other)
  Sender: FDA-Public Use
  Company Number: US-LUPIN PHARMACEUTICALS INC.-2014-00629

PATIENT
  Sex: Male

DRUGS (1)
  1. FAMOTIDINE FOR ORAL SUSPENSION USP 40MG/5ML [Suspect]
     Active Substance: FAMOTIDINE
     Indication: PRODUCT USED FOR UNKNOWN INDICATION
     Route: 065

REACTIONS (2)
  - Convulsion [Unknown]
  - Gastrooesophageal reflux disease [Unknown]
